FAERS Safety Report 5580246-X (Version None)
Quarter: 2008Q1

REPORT INFORMATION
  Report Type: 
  Country: None (occurrence: None)
  Receive Date: 20080103
  Receipt Date: 20071226
  Transmission Date: 20080703
  Serious: Yes (Hospitalization)
  Sender: FDA-Public Use
  Company Number: PE-ABBOTT-07P-127-0431422-00

PATIENT
  Sex: Female
  Weight: 68.8 kg

DRUGS (9)
  1. HUMIRA [Suspect]
     Indication: RHEUMATOID ARTHRITIS
     Route: 058
     Dates: start: 20070521, end: 20071120
  2. METHOTREXATE [Concomitant]
     Indication: RHEUMATOID ARTHRITIS
     Dates: start: 20070103, end: 20071219
  3. SULFAZALACINE [Concomitant]
     Indication: RHEUMATOID ARTHRITIS
     Dates: start: 20070103, end: 20071219
  4. HYDROXYCHLOROQUINE [Concomitant]
     Indication: RHEUMATOID ARTHRITIS
     Dates: start: 20020220, end: 20071219
  5. CELECOXIB [Concomitant]
     Indication: RHEUMATOID ARTHRITIS
     Dates: start: 20051207, end: 20071219
  6. CALCIUM CARBONATE [Concomitant]
     Indication: OSTEOPOROSIS PROPHYLAXIS
     Dates: start: 20040415, end: 20071223
  7. RANITIDINE HCL [Concomitant]
     Indication: GASTRITIS PROPHYLAXIS
     Dates: start: 20010620, end: 20071223
  8. ARTIFICIAL TEARS [Concomitant]
     Indication: SJOGREN'S SYNDROME
     Dates: start: 20050209, end: 20071223
  9. FOLIC ACID [Concomitant]
     Indication: MEDICAL DIET
     Dates: start: 20070505, end: 20071223

REACTIONS (3)
  - INFECTIOUS MONONUCLEOSIS [None]
  - RESPIRATORY FAILURE [None]
  - SEPSIS [None]
